FAERS Safety Report 5963753-7 (Version None)
Quarter: 2008Q4

REPORT INFORMATION
  Report Type: 
  Country: None (occurrence: None)
  Receive Date: 20081120
  Receipt Date: 20081112
  Transmission Date: 20090506
  Serious: Yes (Death, Other)
  Sender: FDA-Public Use
  Company Number: CLOF-1000331

PATIENT
  Age: 8 Year
  Sex: Female

DRUGS (3)
  1. EVOLTRA (CLOFARABINE) SOLUTION FOR INFUSION [Suspect]
     Indication: ACUTE LEUKAEMIA
  2. ENDOXAN (CYCLOPHOSPHAMIDE MONOHYDRATE) [Concomitant]
  3. ETOPOSIDE [Concomitant]

REACTIONS (4)
  - APLASIA [None]
  - HAEMODIALYSIS [None]
  - MULTI-ORGAN FAILURE [None]
  - RENAL FAILURE ACUTE [None]
